FAERS Safety Report 15737983 (Version 4)
Quarter: 2019Q3

REPORT INFORMATION
  Report Type: Report from Study
  Country: CA (occurrence: CA)
  Receive Date: 20181219
  Receipt Date: 20190724
  Transmission Date: 20191004
  Serious: Yes (Hospitalization, Other)
  Sender: FDA-Public Use
  Company Number: CA-ROCHE-2231780

PATIENT
  Age: 63 Year
  Sex: Male

DRUGS (18)
  1. DIPHENHYDRAMINE HCL [Concomitant]
     Active Substance: DIPHENHYDRAMINE HYDROCHLORIDE
     Indication: PREMEDICATION
     Route: 048
     Dates: start: 20181211
  2. METHOTREXATE. [Concomitant]
     Active Substance: METHOTREXATE
  3. METFORMIN [Concomitant]
     Active Substance: METFORMIN HYDROCHLORIDE
  4. NITRO [GLYCERYL TRINITRATE] [Concomitant]
     Active Substance: NITROGLYCERIN
  5. FOLIC ACID. [Concomitant]
     Active Substance: FOLIC ACID
  6. ASA [Concomitant]
     Active Substance: ASPIRIN
  7. DUTASTERIDE. [Concomitant]
     Active Substance: DUTASTERIDE
  8. FENOFIBRATE. [Concomitant]
     Active Substance: FENOFIBRATE
  9. METHYLPREDNISOLONE. [Concomitant]
     Active Substance: METHYLPREDNISOLONE
     Indication: PREMEDICATION
     Route: 042
     Dates: start: 20181211
  10. VIT D [Concomitant]
     Active Substance: VITAMIN D NOS
  11. RITUXAN [Suspect]
     Active Substance: RITUXIMAB
     Indication: PEMPHIGOID
     Route: 042
     Dates: start: 20181211, end: 20190118
  12. RAPAFLO [Concomitant]
     Active Substance: SILODOSIN
  13. SAXAGLIPTIN [Concomitant]
     Active Substance: SAXAGLIPTIN
  14. JARDIANCE [Concomitant]
     Active Substance: EMPAGLIFLOZIN
  15. ACETAMINOPHEN. [Concomitant]
     Active Substance: ACETAMINOPHEN
     Indication: PREMEDICATION
     Route: 048
     Dates: start: 20181211
  16. BISOPROLOL [Concomitant]
     Active Substance: BISOPROLOL
  17. ATORVASTATIN [Concomitant]
     Active Substance: ATORVASTATIN
  18. RAMIPRIL. [Concomitant]
     Active Substance: RAMIPRIL

REACTIONS (9)
  - Bronchitis [Unknown]
  - Off label use [Unknown]
  - Product use in unapproved indication [Unknown]
  - Erythema [Not Recovered/Not Resolved]
  - Infusion related reaction [Recovered/Resolved]
  - Throat irritation [Recovered/Resolved]
  - Ocular hyperaemia [Not Recovered/Not Resolved]
  - Eye swelling [Not Recovered/Not Resolved]
  - Tinnitus [Not Recovered/Not Resolved]

NARRATIVE: CASE EVENT DATE: 20181211
